FAERS Safety Report 5615248-8 (Version None)
Quarter: 2008Q1

REPORT INFORMATION
  Report Type: 
  Country: None (occurrence: None)
  Receive Date: 20080201
  Receipt Date: 20080125
  Transmission Date: 20080703
  Serious: Yes (Life-Threatening)
  Sender: FDA-Public Use
  Company Number: FACT0800016

PATIENT
  Age: 48 Year
  Sex: Female
  Weight: 65 kg

DRUGS (2)
  1. FACTIVE [Suspect]
     Indication: BRONCHITIS
     Dosage: 320 MG, QD, ORAL
     Route: 048
     Dates: start: 20080107, end: 20080112
  2. DESLORATADINE (DESLORATADINE) [Concomitant]

REACTIONS (8)
  - ALANINE AMINOTRANSFERASE INCREASED [None]
  - ANAPHYLACTIC SHOCK [None]
  - FACE OEDEMA [None]
  - GENERALISED OEDEMA [None]
  - HEART RATE INCREASED [None]
  - NEUTROPHILIA [None]
  - PRURITUS GENERALISED [None]
  - RASH [None]
